FAERS Safety Report 25271344 (Version 1)
Quarter: 2025Q2

REPORT INFORMATION
  Report Type: Spontaneous
  Country: US (occurrence: US)
  Receive Date: 20250506
  Receipt Date: 20250506
  Transmission Date: 20250717
  Serious: No
  Sender: TRIS PHARMA, INC.
  Company Number: US-TRIS PHARMA, INC.-25US011942

PATIENT

DRUGS (3)
  1. DYANAVEL XR [Suspect]
     Active Substance: AMPHETAMINE
     Indication: Attention deficit hyperactivity disorder
  2. DYANAVEL XR [Suspect]
     Active Substance: AMPHETAMINE
  3. DYANAVEL XR [Suspect]
     Active Substance: AMPHETAMINE

REACTIONS (1)
  - Urinary tract infection [Unknown]
